FAERS Safety Report 16230393 (Version 2)
Quarter: 2019Q2

REPORT INFORMATION
  Report Type: Spontaneous
  Country: JP (occurrence: JP)
  Receive Date: 20190423
  Receipt Date: 20190517
  Transmission Date: 20190711
  Serious: Yes (Hospitalization, Other)
  Sender: FDA-Public Use
  Company Number: JP-ASTRAZENECA-2018SF22975

PATIENT
  Age: 26699 Day
  Sex: Female
  Weight: 47 kg

DRUGS (5)
  1. LIXIANA [Concomitant]
     Active Substance: EDOXABAN TOSYLATE
     Indication: ATRIAL FIBRILLATION
     Route: 048
  2. TAGRISSO [Suspect]
     Active Substance: OSIMERTINIB
     Indication: NON-SMALL CELL LUNG CANCER
     Route: 048
     Dates: start: 20180830, end: 20180831
  3. MYSLEE [Concomitant]
     Active Substance: ZOLPIDEM TARTRATE
     Indication: INSOMNIA
     Route: 048
  4. SIMVASTATIN. [Concomitant]
     Active Substance: SIMVASTATIN
     Indication: DYSLIPIDAEMIA
     Route: 048
  5. ONON [Concomitant]
     Active Substance: PRANLUKAST
     Indication: ASTHMA
     Route: 048

REACTIONS (2)
  - Erythema multiforme [Recovered/Resolved]
  - Type I hypersensitivity [Recovering/Resolving]

NARRATIVE: CASE EVENT DATE: 20180831
